FAERS Safety Report 11688634 (Version 1)
Quarter: 2015Q4

REPORT INFORMATION
  Report Type: Spontaneous
  Country: US (occurrence: US)
  Receive Date: 20151102
  Receipt Date: 20151102
  Transmission Date: 20160304
  Serious: Yes (Death)
  Sender: FDA-Public Use
  Company Number: US-ROCHE-1653888

PATIENT
  Sex: Male
  Weight: 99.88 kg

DRUGS (1)
  1. ESBRIET [Suspect]
     Active Substance: PIRFENIDONE
     Indication: IDIOPATHIC PULMONARY FIBROSIS
     Dosage: ESBRIET 267MG CAPSULE, 3 CAPS PO TID
     Route: 048
     Dates: start: 20150630

REACTIONS (1)
  - Death [Fatal]
